FAERS Safety Report 7894071-8 (Version None)
Quarter: 2011Q4

REPORT INFORMATION
  Report Type: 
  Country: None (occurrence: None)
  Receive Date: 20111104
  Receipt Date: 20111031
  Transmission Date: 20120403
  Serious: No
  Sender: FDA-Public Use
  Company Number: US-PFIZER INC-2011267778

PATIENT
  Sex: Female
  Weight: 49.433 kg

DRUGS (11)
  1. AZITHROMYCIN [Suspect]
     Dosage: UNK
  2. LISINOPRIL [Concomitant]
     Dosage: 10 MG, 2X/DAY
     Route: 048
  3. SPIRONOLACTONE [Concomitant]
     Dosage: 25 MG, 1X/DAY
     Route: 048
  4. FUROSEMIDE [Concomitant]
     Dosage: 40 MG, 1X/DAY
     Route: 048
  5. LOVASTATIN [Concomitant]
     Dosage: 40 MG, 1X/DAY
     Route: 048
  6. PLAVIX [Concomitant]
     Dosage: 75 MG, UNK
  7. NITROGLYCERIN [Concomitant]
     Dosage: 0.4 MG, AS NEEDED (1 SL PRN CP)
  8. PEPCID [Concomitant]
     Indication: ABDOMINAL DISCOMFORT
     Dosage: UNK
     Dates: start: 20090101
  9. DIOCTYL SODIUM SULFOSUCCINATE [Concomitant]
     Dosage: 250 MG, 1X/DAY
     Route: 048
  10. ACETYLSALICYLIC ACID [Concomitant]
     Dosage: 81 MG, ALTERNATE DAY (81MG QOD)
     Route: 048
  11. POTASSIUM CHLORIDE [Concomitant]
     Dosage: 10 MEQ, ALTERNATE DAY
     Route: 048

REACTIONS (1)
  - DRUG HYPERSENSITIVITY [None]
